FAERS Safety Report 6542714-3 (Version None)
Quarter: 2010Q1

REPORT INFORMATION
  Report Type: 
  Country: None (occurrence: None)
  Receive Date: 20100119
  Receipt Date: 20100108
  Transmission Date: 20100710
  Serious: Yes (Disabling)
  Sender: FDA-Public Use
  Company Number: FR-GENENTECH-296814

PATIENT
  Sex: Male

DRUGS (14)
  1. MABTHERA [Suspect]
     Indication: DIFFUSE LARGE B-CELL LYMPHOMA
     Dosage: 700 MG, UNK
     Route: 065
     Dates: start: 20090520
  2. METHOTREXATE [Suspect]
     Indication: DIFFUSE LARGE B-CELL LYMPHOMA
     Dosage: 5.7 G, UNK
     Route: 037
     Dates: start: 20090717
  3. METHOTREXATE [Suspect]
     Dosage: UNK
     Route: 037
     Dates: start: 20090730
  4. METHOTREXATE [Suspect]
     Dosage: 15 MG, UNK
     Route: 037
     Dates: start: 20091002
  5. IFOSFAMIDE [Suspect]
     Indication: DIFFUSE LARGE B-CELL LYMPHOMA
     Dosage: 2840 MG, UNK
     Route: 042
     Dates: start: 20090819
  6. ETOPOSIDE [Suspect]
     Indication: DRUG USE FOR UNKNOWN INDICATION
     Dosage: 560 MG, UNK
     Route: 042
     Dates: start: 20090819
  7. DOXORUBICIN HCL [Concomitant]
     Indication: DRUG USE FOR UNKNOWN INDICATION
     Dosage: 140 MG, UNK
     Dates: start: 20090520
  8. CYCLOPHOSPHAMIDE [Concomitant]
     Indication: DRUG USE FOR UNKNOWN INDICATION
     Dosage: 2300 MG, UNK
     Dates: start: 20090520
  9. VINDESINE [Concomitant]
     Indication: DRUG USE FOR UNKNOWN INDICATION
     Dosage: UNK
     Dates: start: 20090520, end: 20090524
  10. BLEOMYCIN SULFATE [Concomitant]
     Indication: DRUG USE FOR UNKNOWN INDICATION
     Dosage: UNK
     Dates: start: 20090520, end: 20090524
  11. METHYLPREDNISOLONE [Concomitant]
     Indication: DRUG USE FOR UNKNOWN INDICATION
     Dosage: UNK
     Dates: start: 20090520, end: 20090524
  12. DEPOCYT [Concomitant]
     Indication: DRUG USE FOR UNKNOWN INDICATION
     Dosage: 50 MG, UNK
     Route: 037
     Dates: start: 20090520
  13. PREDNISONE [Concomitant]
     Indication: DRUG USE FOR UNKNOWN INDICATION
     Dosage: UNK
  14. UROMITEXAN [Concomitant]
     Indication: DRUG USE FOR UNKNOWN INDICATION
     Dosage: 1000 MG, UNK
     Dates: start: 20090819

REACTIONS (1)
  - PARAESTHESIA [None]
